FAERS Safety Report 16613943 (Version 4)
Quarter: 2019Q4

REPORT INFORMATION
  Report Type: Report from Study
  Country: US (occurrence: US)
  Receive Date: 20190723
  Receipt Date: 20191004
  Transmission Date: 20200122
  Serious: Yes (Death, Other)
  Sender: FDA-Public Use
  Company Number: US-ACADIA PHARMACEUTICALS INC.-ACA-2019-013512

PATIENT
  Sex: Male
  Weight: 79 kg

DRUGS (17)
  1. NUPLAZID [Suspect]
     Active Substance: PIMAVANSERIN TARTRATE
     Indication: DELUSION
     Dosage: AT HIGHER THAN HIS NORMAL DOSING
     Route: 065
     Dates: start: 201907, end: 201907
  2. CARBIDOPA/LEVODOPA [Concomitant]
     Active Substance: CARBIDOPA\LEVODOPA
     Indication: PRODUCT USED FOR UNKNOWN INDICATION
     Dosage: 50-200 MG
     Dates: start: 20190114
  3. PROPRANOLOL HCL [Concomitant]
     Active Substance: PROPRANOLOL HYDROCHLORIDE
     Indication: PRODUCT USED FOR UNKNOWN INDICATION
     Dosage: 40 MG, UNK
  4. SILDENAFIL CITRATE. [Concomitant]
     Active Substance: SILDENAFIL CITRATE
     Indication: PRODUCT USED FOR UNKNOWN INDICATION
     Dosage: 50 MG, UNK
     Dates: start: 20181221
  5. SILDENAFIL CITRATE. [Concomitant]
     Active Substance: SILDENAFIL CITRATE
     Dosage: 50 MG TABLET
     Dates: start: 20180109
  6. EXELON [Concomitant]
     Active Substance: RIVASTIGMINE TARTRATE
     Indication: PRODUCT USED FOR UNKNOWN INDICATION
     Dosage: 4.6 MG/24 HR
  7. CARBIDOPA/LEVODOPA [Concomitant]
     Active Substance: CARBIDOPA\LEVODOPA
     Dosage: 25-100 MG
     Dates: start: 201901
  8. PRAMIPEXOLE DIHYDROCHLORIDE. [Concomitant]
     Active Substance: PRAMIPEXOLE DIHYDROCHLORIDE
     Indication: PRODUCT USED FOR UNKNOWN INDICATION
     Dosage: 1.5 MG TABLET
  9. NUPLAZID [Suspect]
     Active Substance: PIMAVANSERIN TARTRATE
     Indication: HALLUCINATION
     Dosage: 34 MG, QD
     Route: 048
     Dates: start: 20190618, end: 201907
  10. MIRAPEX [Concomitant]
     Active Substance: PRAMIPEXOLE DIHYDROCHLORIDE
     Indication: PRODUCT USED FOR UNKNOWN INDICATION
     Dosage: 1.5 MG TABLET
  11. CLONIDINE HCL [Concomitant]
     Active Substance: CLONIDINE HYDROCHLORIDE
     Indication: PRODUCT USED FOR UNKNOWN INDICATION
     Dosage: 0.1 MG TABLET
  12. LUMIGAN [Concomitant]
     Active Substance: BIMATOPROST
     Indication: PRODUCT USED FOR UNKNOWN INDICATION
     Dosage: 0.01%
  13. SINEMET [Concomitant]
     Active Substance: CARBIDOPA\LEVODOPA
     Indication: PRODUCT USED FOR UNKNOWN INDICATION
     Dosage: 25-100 MG TABLET
  14. NUPLAZID [Suspect]
     Active Substance: PIMAVANSERIN TARTRATE
     Indication: PARKINSON^S DISEASE PSYCHOSIS
     Dosage: 34 MG, UNK
     Route: 065
     Dates: start: 20190508
  15. MELATONIN [Concomitant]
     Active Substance: MELATONIN
     Indication: PRODUCT USED FOR UNKNOWN INDICATION
     Dosage: 10 MG, UNK
     Dates: start: 20190412
  16. INDERAL [Concomitant]
     Active Substance: PROPRANOLOL HYDROCHLORIDE
     Indication: PRODUCT USED FOR UNKNOWN INDICATION
     Dosage: 120 MG CAPSULE EXTENDED RELEASE 24 HR
  17. AZILECT [Concomitant]
     Active Substance: RASAGILINE MESYLATE
     Indication: PRODUCT USED FOR UNKNOWN INDICATION
     Dosage: 1 MG, UNK

REACTIONS (7)
  - Dementia [Unknown]
  - Overdose [Unknown]
  - Parkinson^s disease [Fatal]
  - Unresponsive to stimuli [Unknown]
  - Abnormal behaviour [Unknown]
  - Hypophagia [Unknown]
  - Pain [Unknown]

NARRATIVE: CASE EVENT DATE: 2019
